FAERS Safety Report 14439926 (Version 3)
Quarter: 2019Q1

REPORT INFORMATION
  Report Type: Spontaneous
  Country: IT (occurrence: IT)
  Receive Date: 20180125
  Receipt Date: 20190111
  Transmission Date: 20190417
  Serious: Yes (Hospitalization, Other)
  Sender: FDA-Public Use
  Company Number: IT-PFIZER INC-2018033438

PATIENT
  Age: 34 Year
  Sex: Male

DRUGS (3)
  1. TAVOR (LORAZEPAM) [Suspect]
     Active Substance: LORAZEPAM
     Dosage: 150 MG (60 DF), TOTAL
     Route: 048
     Dates: start: 20180101, end: 20180101
  2. LEXOTAN [Suspect]
     Active Substance: BROMAZEPAM
     Dosage: 100 ML, TOTAL
     Route: 048
     Dates: start: 20180101, end: 20180101
  3. ADALAT CRONO [Suspect]
     Active Substance: NIFEDIPINE
     Dosage: 560 MG (28 DF), TOTAL
     Route: 048
     Dates: start: 20180101, end: 20180101

REACTIONS (3)
  - Drug abuse [Recovered/Resolved]
  - Suicide attempt [Recovered/Resolved]
  - Sopor [Recovered/Resolved]

NARRATIVE: CASE EVENT DATE: 20180101
